FAERS Safety Report 14401988 (Version 2)
Quarter: 2018Q1

REPORT INFORMATION
  Report Type: Spontaneous
  Country: US (occurrence: US)
  Receive Date: 20180117
  Receipt Date: 20180124
  Transmission Date: 20180509
  Serious: Yes (Other)
  Sender: FDA-Public Use
  Company Number: US-PFIZER INC-2018014319

PATIENT
  Age: 68 Year
  Sex: Female

DRUGS (1)
  1. NOREPINEPHRINE BITARTRATE. [Suspect]
     Active Substance: NOREPINEPHRINE BITARTRATE
     Dosage: 3.2 MG (BOLUS), UNK
     Route: 042

REACTIONS (3)
  - Overdose [Unknown]
  - Stress cardiomyopathy [Recovered/Resolved]
  - Product use issue [Unknown]
